FAERS Safety Report 19470857 (Version 3)
Quarter: 2021Q3

REPORT INFORMATION
  Report Type: Report from Study
  Country: None (occurrence: US)
  Receive Date: 20210629
  Receipt Date: 20210803
  Transmission Date: 20211014
  Serious: Yes (Hospitalization, Other)
  Sender: FDA-Public Use
  Company Number: US-ABBVIE-21K-163-3939670-00

PATIENT
  Age: 66 Year
  Sex: Female
  Weight: 53.12 kg

DRUGS (18)
  1. MODERNA COVID?19 VACCINE [Concomitant]
     Active Substance: CX-024414
     Route: 030
     Dates: start: 20210413, end: 20210413
  2. HYOSCYAMINE. [Concomitant]
     Active Substance: HYOSCYAMINE
     Indication: CROHN^S DISEASE
     Dosage: AS NEEDED
  3. HUMIRA [Suspect]
     Active Substance: ADALIMUMAB
     Indication: CROHN^S DISEASE
     Route: 058
  4. ALENDRONATE SODIUM. [Concomitant]
     Active Substance: ALENDRONATE SODIUM
     Indication: SUPPLEMENTATION THERAPY
  5. ALENDRONATE [Concomitant]
     Active Substance: ALENDRONATE SODIUM
     Indication: OSTEOPOROSIS
  6. MODERNA COVID?19 VACCINE [Concomitant]
     Active Substance: CX-024414
     Indication: COVID-19 IMMUNISATION
     Dosage: MODERNA
     Route: 030
     Dates: start: 20210316, end: 20210316
  7. PHENOBARBITAL. [Concomitant]
     Active Substance: PHENOBARBITAL
     Indication: EPILEPSY
  8. CALCIUM 600 PLUS VITAMIN D3 [Concomitant]
     Indication: MINERAL SUPPLEMENTATION
  9. OXYBUTYNIN. [Concomitant]
     Active Substance: OXYBUTYNIN CHLORIDE
     Indication: POLLAKIURIA
     Dosage: ER
  10. ALEVE [Concomitant]
     Active Substance: NAPROXEN SODIUM
     Indication: PAIN
  11. HUMIRA [Suspect]
     Active Substance: ADALIMUMAB
     Indication: CROHN^S DISEASE
     Route: 058
  12. SERTRALINE [Concomitant]
     Active Substance: SERTRALINE HYDROCHLORIDE
     Indication: DEPRESSION
  13. HUMIRA [Suspect]
     Active Substance: ADALIMUMAB
     Indication: CROHN^S DISEASE
     Route: 058
     Dates: start: 2014
  14. DIVALPROEX [Concomitant]
     Active Substance: DIVALPROEX SODIUM
     Indication: EPILEPSY
  15. VENTOLIN HFA [Concomitant]
     Active Substance: ALBUTEROL SULFATE
     Indication: ASTHMA
     Dosage: INHALER ? 2 PUFFS?AS NEEDED
  16. CALCIUM [Concomitant]
     Active Substance: CALCIUM
     Indication: PRODUCT USED FOR UNKNOWN INDICATION
  17. KEPPRA [Concomitant]
     Active Substance: LEVETIRACETAM
     Indication: EPILEPSY
  18. LEVOTHYROXINE. [Concomitant]
     Active Substance: LEVOTHYROXINE
     Indication: HYPOTHYROIDISM

REACTIONS (8)
  - Heat exhaustion [Unknown]
  - Syncope [Recovered/Resolved]
  - Electroencephalogram abnormal [Unknown]
  - Syncope [Recovered/Resolved]
  - Epilepsy [Unknown]
  - Exposure to extreme temperature [Recovered/Resolved]
  - Urinary tract infection [Recovered/Resolved]
  - Cardiomyopathy [Unknown]

NARRATIVE: CASE EVENT DATE: 202106
